FAERS Safety Report 8508052 (Version 4)
Quarter: 2014Q1

REPORT INFORMATION
  Report Type: Spontaneous
  Country: US (occurrence: US)
  Receive Date: 20120412
  Receipt Date: 20140203
  Transmission Date: 20141002
  Serious: Yes (Other)
  Sender: FDA-Public Use
  Company Number: US-ASTRAZENECA-2011SE54324

PATIENT
  Age: 57 Year
  Sex: Female
  Weight: 70.3 kg

DRUGS (6)
  1. NEXIUM [Suspect]
     Indication: GASTROOESOPHAGEAL REFLUX DISEASE
     Route: 048
     Dates: start: 2009, end: 20140126
  2. NEXIUM [Suspect]
     Indication: GASTROOESOPHAGEAL REFLUX DISEASE
     Dosage: DAILY
     Route: 048
  3. ATENOLOL [Suspect]
     Indication: BLOOD PRESSURE ABNORMAL
     Dosage: DAILY
     Route: 048
     Dates: start: 2009
  4. LIPITOR [Concomitant]
     Indication: BLOOD PRESSURE ABNORMAL
     Dosage: DAILY
     Route: 048
  5. LIPITOR [Concomitant]
     Indication: BLOOD CHOLESTEROL ABNORMAL
     Dosage: DAILY
     Route: 048
  6. NEURONTIN [Concomitant]
     Indication: LIMB DISCOMFORT
     Route: 048

REACTIONS (13)
  - Meningitis [Unknown]
  - Multiple allergies [Unknown]
  - Dyspnoea [Unknown]
  - Regurgitation [Unknown]
  - Dyspepsia [Unknown]
  - Choking [Not Recovered/Not Resolved]
  - Blood pressure abnormal [Unknown]
  - Dysphagia [Unknown]
  - Stress [Unknown]
  - Insomnia [Unknown]
  - Malaise [Not Recovered/Not Resolved]
  - Drug dose omission [Unknown]
  - Off label use [Unknown]
